FAERS Safety Report 11331780 (Version 1)
Quarter: 2015Q3

REPORT INFORMATION
  Report Type: Spontaneous
  Country: GB (occurrence: GB)
  Receive Date: 20150803
  Receipt Date: 20150803
  Transmission Date: 20151125
  Serious: Yes (Hospitalization)
  Sender: FDA-Public Use
  Company Number: GB-BAYER-2015-392289

PATIENT
  Age: 63 Year
  Sex: Male
  Weight: 85.72 kg

DRUGS (1)
  1. LORATADINE. [Suspect]
     Active Substance: LORATADINE
     Indication: TINNITUS
     Dosage: 10 MG, UNK
     Route: 048
     Dates: start: 20140922, end: 20140929

REACTIONS (3)
  - Back pain [Unknown]
  - Drug ineffective for unapproved indication [Unknown]
  - Lipoma [Unknown]

NARRATIVE: CASE EVENT DATE: 20140928
